FAERS Safety Report 20947824 (Version 1)
Quarter: 2022Q2

REPORT INFORMATION
  Report Type: Spontaneous
  Country: US (occurrence: None)
  Receive Date: 20220611
  Receipt Date: 20220611
  Transmission Date: 20220721
  Serious: Yes (Hospitalization)
  Sender: FDA-Public Use
  Company Number: US-ROCHE-3115656

PATIENT
  Sex: Female

DRUGS (1)
  1. ESBRIET [Suspect]
     Active Substance: PIRFENIDONE
     Indication: Idiopathic pulmonary fibrosis
     Dosage: TAKE 1 TABLET 3 TIMES DAILY X7 DAYS, THEN 2 TABS 3 TIMES DAILY X7 DAYS, THEN 3 TABS 3 TIMES DAILY TH
     Route: 048

REACTIONS (2)
  - Hypertension [Recovered/Resolved]
  - Peripheral swelling [Recovered/Resolved]
